FAERS Safety Report 8916704 (Version 3)
Quarter: 2012Q4

REPORT INFORMATION
  Report Type: 
  Country: US (occurrence: US)
  Receive Date: 20121120
  Receipt Date: 20121212
  Transmission Date: 20130627
  Serious: Yes (Death, Other)
  Sender: FDA-Public Use
  Company Number: US-TEVA-370939USA

PATIENT
  Age: 53 Year
  Sex: Male

DRUGS (2)
  1. TREANDA [Suspect]
     Indication: RICHTER^S SYNDROME
  2. RITUXIMAB [Suspect]
     Indication: RICHTER^S SYNDROME

REACTIONS (2)
  - B-cell lymphoma [Fatal]
  - Dermatitis [Unknown]
